FAERS Safety Report 15018314 (Version 1)
Quarter: 2018Q2

REPORT INFORMATION
  Report Type: Report from Study
  Country: None (occurrence: BR)
  Receive Date: 20180615
  Receipt Date: 20180615
  Transmission Date: 20180711
  Serious: Yes (Death, Hospitalization, Other)
  Sender: FDA-Public Use
  Company Number: BR-ABBVIE-18K-020-2360653-00

PATIENT
  Age: 20 Year
  Sex: Male
  Weight: 70 kg

DRUGS (6)
  1. HUMIRA [Suspect]
     Active Substance: ADALIMUMAB
     Indication: CROHN^S DISEASE
     Dosage: WEEK 0 ?LOADING DOSE
     Route: 058
     Dates: start: 20180426, end: 20180426
  2. HUMIRA [Suspect]
     Active Substance: ADALIMUMAB
     Route: 058
  3. OMEPRAZOLE. [Concomitant]
     Active Substance: OMEPRAZOLE
     Indication: DYSPEPSIA
     Dosage: IN THE MORNING
     Dates: start: 2007
  4. AZATHIOPRINE. [Concomitant]
     Active Substance: AZATHIOPRINE
     Indication: CROHN^S DISEASE
     Dates: start: 2007
  5. AZATHIOPRINE. [Concomitant]
     Active Substance: AZATHIOPRINE
  6. HUMIRA [Suspect]
     Active Substance: ADALIMUMAB
     Dosage: WEEK 2 ?LOADING DOSE
     Route: 058
     Dates: start: 20180518, end: 20180518

REACTIONS (29)
  - Malaise [Unknown]
  - Chromaturia [Unknown]
  - Dry throat [Unknown]
  - Pyrexia [Unknown]
  - Hepatitis [Unknown]
  - Hepatic failure [Fatal]
  - Septic shock [Fatal]
  - Renal failure [Not Recovered/Not Resolved]
  - Asthenia [Unknown]
  - Tremor [Unknown]
  - Dyspnoea [Recovering/Resolving]
  - Pneumonia [Fatal]
  - Dry mouth [Unknown]
  - Oropharyngeal pain [Unknown]
  - Crohn^s disease [Fatal]
  - Pulmonary sepsis [Fatal]
  - Gait disturbance [Unknown]
  - Fatigue [Unknown]
  - Ocular icterus [Recovering/Resolving]
  - Catarrh [Not Recovered/Not Resolved]
  - Dysphagia [Unknown]
  - Peripheral swelling [Unknown]
  - Lung disorder [Unknown]
  - Thrombosis [Unknown]
  - Swelling [Recovering/Resolving]
  - Swelling [Unknown]
  - Tuberculosis [Unknown]
  - Oral pain [Unknown]
  - Headache [Unknown]

NARRATIVE: CASE EVENT DATE: 20180426
